FAERS Safety Report 5033312-1 (Version None)
Quarter: 2006Q2

REPORT INFORMATION
  Report Type: 
  Country: None (occurrence: None)
  Receive Date: 20060515
  Receipt Date: 20060216
  Transmission Date: 20061013
  Serious: No
  Sender: FDA-Public Use
  Company Number: S06-USA-00587-01

PATIENT
  Age: 90 Year
  Sex: Female

DRUGS (3)
  1. NAMENDA [Suspect]
     Dosage: 5 MG BID PO
     Route: 048
     Dates: start: 20060216
  2. NAMENDA [Suspect]
     Dosage: 5 MG QD PO
     Route: 048
     Dates: start: 20060209, end: 20060215
  3. MULTIPLE MEDICATIONS (NOS) [Concomitant]

REACTIONS (2)
  - ANOREXIA [None]
  - CONFUSIONAL STATE [None]
